FAERS Safety Report 14392461 (Version 1)
Quarter: 2018Q1

REPORT INFORMATION
  Report Type: Spontaneous
  Country: DE (occurrence: DE)
  Receive Date: 20180116
  Receipt Date: 20180116
  Transmission Date: 20180509
  Serious: Yes (Hospitalization)
  Sender: FDA-Public Use
  Company Number: DE-PFIZER INC-2018015011

PATIENT
  Age: 6 Decade
  Sex: Male

DRUGS (1)
  1. LATANOPROST PFIZER [Suspect]
     Active Substance: LATANOPROST
     Route: 047

REACTIONS (1)
  - Fall [Unknown]
